FAERS Safety Report 11128670 (Version 2)
Quarter: 2015Q2

REPORT INFORMATION
  Report Type: Report from Study
  Country: US (occurrence: US)
  Receive Date: 20150521
  Receipt Date: 20150527
  Transmission Date: 20150821
  Serious: Yes (Death, Life-Threatening, Hospitalization, Disabling, Other)
  Sender: FDA-Public Use
  Company Number: US-ASTRAZENECA-2015SE17013

PATIENT
  Age: 59 Year
  Sex: Female
  Weight: 41.3 kg

DRUGS (17)
  1. LYNPARZA [Suspect]
     Active Substance: OLAPARIB
     Indication: OVARIAN CANCER
     Route: 048
     Dates: start: 20150214, end: 20150508
  2. LOXI [Concomitant]
  3. LAMADOL [Concomitant]
  4. AVASTIN [Concomitant]
     Active Substance: BEVACIZUMAB
  5. DECADRON [Concomitant]
     Active Substance: DEXAMETHASONE
  6. REGLAN [Concomitant]
     Active Substance: METOCLOPRAMIDE HYDROCHLORIDE
  7. OXYCODONE [Concomitant]
     Active Substance: OXYCODONE
  8. MOBIC [Concomitant]
     Active Substance: MELOXICAM
  9. TAXOL [Concomitant]
     Active Substance: PACLITAXEL
  10. PROVEX [Concomitant]
  11. ZANTAC [Concomitant]
     Active Substance: RANITIDINE HYDROCHLORIDE
  12. CARBOPLATIN. [Concomitant]
     Active Substance: CARBOPLATIN
  13. XANAX [Concomitant]
     Active Substance: ALPRAZOLAM
  14. LYNPARZA [Suspect]
     Active Substance: OLAPARIB
     Indication: BRCA1 GENE MUTATION
     Route: 048
     Dates: start: 20150214, end: 20150508
  15. GEMZAR [Concomitant]
     Active Substance: GEMCITABINE HYDROCHLORIDE
  16. NEULASTA [Concomitant]
     Active Substance: PEGFILGRASTIM
  17. IBUPROFEN. [Concomitant]
     Active Substance: IBUPROFEN

REACTIONS (37)
  - Malignant neoplasm progression [Fatal]
  - Intestinal mass [Unknown]
  - Metastases to pleura [Unknown]
  - Leukocytosis [Unknown]
  - Agitation [Unknown]
  - Metastases to peritoneum [Unknown]
  - Thrombocytopenia [Unknown]
  - Abdominal discomfort [Unknown]
  - Tachycardia [Unknown]
  - Biliary dilatation [Unknown]
  - Somnolence [Unknown]
  - Heart rate increased [Unknown]
  - Hepatic neoplasm [Unknown]
  - Tenderness [Unknown]
  - Abdominal pain upper [Recovered/Resolved]
  - Blood lactic acid increased [Unknown]
  - Hypokalaemia [Unknown]
  - Nausea [Recovered/Resolved]
  - Blood pressure decreased [Unknown]
  - Anaemia [Unknown]
  - Metastases to liver [Unknown]
  - Pyrexia [Unknown]
  - Hypomagnesaemia [Unknown]
  - Crepitations [Unknown]
  - Ascites [Unknown]
  - Large intestinal obstruction [Fatal]
  - Sepsis [Unknown]
  - Constipation [Not Recovered/Not Resolved]
  - Pain [Unknown]
  - Secretion discharge [Unknown]
  - Pulmonary mass [Unknown]
  - Fatigue [Recovered/Resolved]
  - Pneumonia [Unknown]
  - Anxiety [Unknown]
  - Vascular calcification [Unknown]
  - Drug ineffective [Unknown]
  - Body temperature increased [Unknown]

NARRATIVE: CASE EVENT DATE: 2015
